FAERS Safety Report 8110990-1 (Version None)
Quarter: 2012Q1

REPORT INFORMATION
  Report Type: 
  Country: None (occurrence: None)
  Receive Date: 20120203
  Receipt Date: 20110131
  Transmission Date: 20120608
  Serious: No
  Sender: FDA-Public Use
  Company Number: US-GLAXOSMITHKLINE-A0910705A

PATIENT
  Sex: Female

DRUGS (1)
  1. LAMICTAL [Suspect]
     Indication: AFFECTIVE DISORDER
     Dosage: 200MG PER DAY
     Route: 048

REACTIONS (1)
  - SKIN DISORDER [None]
